FAERS Safety Report 5870680-2 (Version None)
Quarter: 2008Q3

REPORT INFORMATION
  Report Type: 
  Country: None (occurrence: None)
  Receive Date: 20080904
  Receipt Date: 20080904
  Transmission Date: 20090109
  Serious: Yes (Hospitalization)
  Sender: FDA-Public Use
  Company Number: PHEH1997US04169

PATIENT
  Sex: Female
  Weight: 46.3 kg

DRUGS (6)
  1. SANDIMMUNE [Suspect]
     Route: 048
     Dates: start: 19950906
  2. SYNTHROID [Concomitant]
  3. PREDNISONE [Concomitant]
  4. CELLCEPT [Concomitant]
  5. PEPCID [Concomitant]
  6. MEVACOR [Concomitant]

REACTIONS (1)
  - PYELONEPHRITIS [None]
